FAERS Safety Report 5285578-0 (Version None)
Quarter: 2007Q1

REPORT INFORMATION
  Report Type: 
  Country: None (occurrence: None)
  Receive Date: 20061229
  Receipt Date: 20061013
  Transmission Date: 20070707
  Serious: Yes (Other)
  Sender: FDA-Public Use
  Company Number: 2006UW19872

PATIENT
  Age: 68 Year
  Sex: Female
  Weight: 54.431 kg

DRUGS (8)
  1. CRESTOR [Suspect]
     Indication: BLOOD CHOLESTEROL INCREASED
     Dates: start: 20040101
  2. XANAX [Concomitant]
  3. METFORMIN [Concomitant]
  4. COZAAR [Concomitant]
  5. KLONOPIN [Concomitant]
  6. PREVACID [Concomitant]
  7. TOPROL-XL [Concomitant]
  8. GLIPIZIDE [Concomitant]

REACTIONS (1)
  - DERMATOMYOSITIS [None]
